FAERS Safety Report 13170143 (Version 1)
Quarter: 2017Q1

REPORT INFORMATION
  Report Type: Spontaneous
  Country: DE (occurrence: DE)
  Receive Date: 20170131
  Receipt Date: 20170131
  Transmission Date: 20170428
  Serious: Yes (Other)
  Sender: FDA-Public Use
  Company Number: DE-MYLANLABS-2017M1005433

PATIENT

DRUGS (10)
  1. SERTRALINE [Suspect]
     Active Substance: SERTRALINE HYDROCHLORIDE
     Indication: DEPRESSION
     Dosage: 100 MG, QD
     Route: 064
     Dates: start: 20151128
  2. FERRLECIT                          /00023541/ [Concomitant]
     Indication: IRON DEFICIENCY
     Dosage: 18 INJECTIONS IN TOTAL
     Route: 064
  3. AGYRAX                             /00759701/ [Concomitant]
     Indication: NAUSEA
     Dosage: 25 MG, QD
     Route: 064
  4. OMEPRAZOL                          /00661201/ [Concomitant]
     Active Substance: OMEPRAZOLE
     Indication: DYSPEPSIA
     Dosage: ONLY ONCE DURING THAT TIME
     Route: 064
  5. ATOSIL                             /00033002/ [Concomitant]
     Active Substance: PROMETHAZINE HYDROCHLORIDE
     Indication: SLEEP DISORDER
     Dosage: UNK
     Route: 064
     Dates: start: 20160111
  6. RENNIE                             /01739201/ [Concomitant]
     Indication: DYSPEPSIA
     Route: 064
  7. LEVODOPA [Concomitant]
     Active Substance: LEVODOPA
     Indication: RESTLESS LEGS SYNDROME
     Dosage: 25 MG, QD
     Route: 064
  8. NAUSEMA [Concomitant]
     Indication: NAUSEA
     Dosage: UNK
     Route: 064
  9. FOLIO                              /06866801/ [Concomitant]
     Indication: PROPHYLAXIS OF NEURAL TUBE DEFECT
     Dosage: 0.4 MG, QD
     Route: 064
  10. RIOPAN                             /00141701/ [Concomitant]
     Active Substance: MAGALDRATE
     Indication: DYSPEPSIA
     Dosage: 4 OR 5 TIMES ONLY
     Route: 064

REACTIONS (5)
  - Anaemia [Recovering/Resolving]
  - Atrial septal defect [Unknown]
  - Hyperbilirubinaemia neonatal [Recovered/Resolved]
  - Respiratory disorder neonatal [Recovered/Resolved]
  - Haemolysis [Unknown]

NARRATIVE: CASE EVENT DATE: 20160815
